FAERS Safety Report 8346816 (Version 7)
Quarter: 2014Q3

REPORT INFORMATION
  Report Type: Spontaneous
  Country: US (occurrence: US)
  Receive Date: 20120120
  Receipt Date: 20140902
  Transmission Date: 20150326
  Serious: Yes (Disabling, Other)
  Sender: FDA-Public Use
  Company Number: CHPA2012US001215

PATIENT
  Age: 61 Year
  Sex: Female
  Weight: 53.52 kg

DRUGS (7)
  1. ZINC [Concomitant]
     Active Substance: ZINC\ZINC CHLORIDE
     Dosage: 30 MG, UNK
  2. PROMETHAZINE HCL [Concomitant]
     Active Substance: PROMETHAZINE HYDROCHLORIDE
     Indication: NAUSEA
     Dosage: 25 MG, PRN
     Route: 048
  3. CENTRUM SILVER [Concomitant]
     Active Substance: VITAMINS
  4. EXCEDRIN EXTRA STRENGTH [Suspect]
     Active Substance: ACETAMINOPHEN\ASPIRIN\CAFFEINE
     Indication: HEADACHE
     Dosage: 1 DF 2-3 TIMES A DAY
     Route: 048
  5. CALCIUM [Concomitant]
     Active Substance: CALCIUM
  6. CALCIUM + VITAMIN D [Concomitant]
     Active Substance: CALCIUM\VITAMIN D
  7. MAGNESIUM [Concomitant]
     Active Substance: MAGNESIUM

REACTIONS (12)
  - Gastritis [Recovered/Resolved]
  - Activities of daily living impaired [Unknown]
  - Vomiting [Recovered/Resolved]
  - Dyspepsia [Unknown]
  - White blood cell count decreased [Unknown]
  - Urine analysis abnormal [Unknown]
  - Underdose [Unknown]
  - Incorrect drug administration duration [Unknown]
  - Diarrhoea [Recovered/Resolved]
  - Back pain [Unknown]
  - Decreased appetite [Unknown]
  - Nausea [Unknown]

NARRATIVE: CASE EVENT DATE: 20111214
